FAERS Safety Report 25260049 (Version 2)
Quarter: 2025Q2

REPORT INFORMATION
  Report Type: Report from Study
  Country: US (occurrence: US)
  Receive Date: 20250501
  Receipt Date: 20250513
  Transmission Date: 20250717
  Serious: Yes (Hospitalization)
  Sender: EISAI
  Company Number: US-Eisai-EC-2025-188242

PATIENT
  Age: 57 Year
  Sex: Male

DRUGS (2)
  1. LENVIMA [Suspect]
     Active Substance: LENVATINIB
     Indication: Renal cancer
     Dates: start: 2025, end: 202504
  2. LENVIMA [Suspect]
     Active Substance: LENVATINIB
     Dates: start: 202504

REACTIONS (4)
  - Hypertension [Recovering/Resolving]
  - Fatigue [Recovering/Resolving]
  - Arthralgia [Recovering/Resolving]
  - Bone pain [Recovering/Resolving]

NARRATIVE: CASE EVENT DATE: 20250401
